FAERS Safety Report 4805928-6 (Version None)
Quarter: 2005Q4

REPORT INFORMATION
  Report Type: 
  Country: None (occurrence: None)
  Receive Date: 20051019
  Receipt Date: 20051004
  Transmission Date: 20060501
  Serious: Yes (Other)
  Sender: FDA-Public Use
  Company Number: USA0510109973

PATIENT
  Sex: Female

DRUGS (4)
  1. FORTEO [Suspect]
     Indication: OSTEOPOROSIS
     Dates: start: 20050922
  2. EVISTA [Concomitant]
  3. CALCIUM GLUCONATE [Concomitant]
  4. ACTONEL [Concomitant]

REACTIONS (8)
  - ALOPECIA [None]
  - ASTHENIA [None]
  - CEREBROVASCULAR ACCIDENT [None]
  - HEMIANOPIA [None]
  - MUSCLE SPASMS [None]
  - MUSCULAR WEAKNESS [None]
  - NAIL GROWTH ABNORMAL [None]
  - PHARMACEUTICAL PRODUCT COMPLAINT [None]
